FAERS Safety Report 8624490-3 (Version None)
Quarter: 2012Q3

REPORT INFORMATION
  Report Type: 
  Country: None (occurrence: None)
  Receive Date: 20120827
  Receipt Date: 20120815
  Transmission Date: 20120928
  Serious: Yes (Hospitalization, Other)
  Sender: FDA-Public Use
  Company Number: US-009507513-1103USA00937

PATIENT

DRUGS (5)
  1. FOSAMAX [Suspect]
     Indication: OSTEOPOROSIS
     Dosage: 70 MG, QW
     Route: 048
     Dates: start: 19950101, end: 20080412
  2. FOSAMAX [Suspect]
     Dosage: 70 MG, QW
     Route: 048
  3. CALCIUM (UNSPECIFIED) [Concomitant]
     Dates: start: 19960101
  4. MK-9278 [Concomitant]
     Dosage: UNK UNK, QD
     Dates: start: 19960101
  5. FOSAMAX [Suspect]
     Dosage: 70 MG, QW
     Route: 048
     Dates: start: 20080401, end: 20090503

REACTIONS (23)
  - FALL [None]
  - FRACTURE [None]
  - CEREBRAL INFARCTION [None]
  - DEPRESSION [None]
  - INSOMNIA [None]
  - ABSCESS [None]
  - FEMUR FRACTURE [None]
  - HYPERCHOLESTEROLAEMIA [None]
  - SPINAL DISORDER [None]
  - INTERVERTEBRAL DISC DEGENERATION [None]
  - DIVERTICULUM [None]
  - UPPER RESPIRATORY TRACT INFECTION [None]
  - KNEE ARTHROPLASTY [None]
  - ANXIETY [None]
  - CHOLELITHIASIS [None]
  - DIVERTICULITIS [None]
  - OSTEOARTHRITIS [None]
  - LOW TURNOVER OSTEOPATHY [None]
  - SCOLIOSIS [None]
  - HYPOTHYROIDISM [None]
  - ROTATOR CUFF SYNDROME [None]
  - HYPERTENSION [None]
  - VISUAL IMPAIRMENT [None]
